FAERS Safety Report 8169287-6 (Version None)
Quarter: 2012Q1

REPORT INFORMATION
  Report Type: 
  Country: None (occurrence: None)
  Receive Date: 20120228
  Receipt Date: 20120220
  Transmission Date: 20120608
  Serious: Yes (Hospitalization, Other)
  Sender: FDA-Public Use
  Company Number: GR-BIOGENIDEC-2011BI032906

PATIENT
  Age: 54 Year
  Sex: Male

DRUGS (5)
  1. TYSABRI [Suspect]
     Route: 042
     Dates: start: 20120113
  2. OMNIC TOCAS [Concomitant]
     Route: 048
  3. MIOREL [Concomitant]
     Route: 048
  4. TYSABRI [Suspect]
     Indication: RELAPSING-REMITTING MULTIPLE SCLEROSIS
     Route: 042
     Dates: start: 20071128, end: 20110628
  5. LIPIDIL [Concomitant]
     Indication: HYPERLIPIDAEMIA
     Route: 048

REACTIONS (1)
  - TRANSITIONAL CELL CARCINOMA [None]
